FAERS Safety Report 9864437 (Version 2)
Quarter: 2014Q1

REPORT INFORMATION
  Report Type: Spontaneous
  Country: US (occurrence: US)
  Receive Date: 20140203
  Receipt Date: 20140203
  Transmission Date: 20141002
  Serious: No
  Sender: FDA-Public Use
  Company Number: US-AMGEN-USASP2014000563

PATIENT
  Age: 46 Year
  Sex: Female

DRUGS (1)
  1. ENBREL [Suspect]
     Indication: RHEUMATOID ARTHRITIS
     Dosage: 50 MG, QWK
     Route: 065
     Dates: start: 20131118, end: 20131223

REACTIONS (5)
  - Sensation of pressure [Not Recovered/Not Resolved]
  - Facial pain [Not Recovered/Not Resolved]
  - Swelling face [Not Recovered/Not Resolved]
  - Tooth disorder [Not Recovered/Not Resolved]
  - Viral infection [Recovered/Resolved]
